FAERS Safety Report 8153203 (Version 3)
Quarter: 2013Q2

REPORT INFORMATION
  Report Type: Report from Study
  Country: CN (occurrence: CN)
  Receive Date: 20110923
  Receipt Date: 20130408
  Transmission Date: 20140414
  Serious: Yes (Hospitalization)
  Sender: FDA-Public Use
  Company Number: CN-JNJFOC-20110906178

PATIENT
  Age: 30 Year
  Sex: Female
  Weight: 69 kg

DRUGS (1)
  1. PALIPERIDONE PALMITATE [Suspect]
     Indication: SCHIZOPHRENIA
     Route: 030
     Dates: start: 20110222, end: 20110913

REACTIONS (1)
  - Schizophrenia [Recovered/Resolved]
